FAERS Safety Report 10077102 (Version 3)
Quarter: 2014Q3

REPORT INFORMATION
  Report Type: Report from Study
  Country: ES (occurrence: ES)
  Receive Date: 20140414
  Receipt Date: 20140911
  Transmission Date: 20150326
  Serious: Yes (Death)
  Sender: FDA-Public Use
  Company Number: PHHO2013ES009369

PATIENT
  Age: 82 Year
  Sex: Female

DRUGS (1)
  1. ICL670A [Suspect]
     Active Substance: DEFERASIROX
     Indication: MYELODYSPLASTIC SYNDROME
     Dosage: 100 MG, PER DAY
     Route: 048
     Dates: start: 20120202, end: 20130102

REACTIONS (2)
  - Myelodysplastic syndrome transformation [Fatal]
  - Leukaemia [Fatal]

NARRATIVE: CASE EVENT DATE: 20130102
